FAERS Safety Report 9152149 (Version 1)
Quarter: 2013Q1

REPORT INFORMATION
  Report Type: Report from Study
  Country: None (occurrence: US)
  Receive Date: 20130308
  Receipt Date: 20130308
  Transmission Date: 20140127
  Serious: Yes (Life-Threatening, Hospitalization)
  Sender: FDA-Public Use
  Company Number: US-ROCHE-1196788

PATIENT
  Age: 53 Year
  Sex: Male
  Weight: 90.7 kg

DRUGS (4)
  1. BEVACIZUMAB [Suspect]
     Indication: METASTATIC MALIGNANT MELANOMA
     Dosage: LAST DOSE PRIOR TO SAE ON 11/JAN/2013
     Route: 042
     Dates: start: 20121127, end: 20130111
  2. CARBOPLATIN [Suspect]
     Indication: METASTATIC MALIGNANT MELANOMA
     Dosage: 5 AUC,LAST DOSE PRIOR TO SAE ON 11/JAN/2013
     Route: 042
     Dates: start: 20121127, end: 20121226
  3. EVEROLIMUS [Suspect]
     Indication: METASTATIC MALIGNANT MELANOMA
     Dosage: LAST DOSE PRIOR TO SAE ON 11/JAN/2013
     Route: 048
     Dates: start: 20121127, end: 20130109
  4. PACLITAXEL [Suspect]
     Indication: METASTATIC MALIGNANT MELANOMA
     Route: 042
     Dates: start: 20121127, end: 20130111

REACTIONS (2)
  - Sepsis [Not Recovered/Not Resolved]
  - Renal failure acute [Not Recovered/Not Resolved]
